FAERS Safety Report 24249704 (Version 2)
Quarter: 2024Q3

REPORT INFORMATION
  Report Type: Spontaneous
  Country: US (occurrence: US)
  Receive Date: 20240826
  Receipt Date: 20240829
  Transmission Date: 20241016
  Serious: No
  Sender: ELI LILLY AND CO
  Company Number: US-ELI_LILLY_AND_COMPANY-US202408011262

PATIENT
  Age: 51 Year
  Sex: Female

DRUGS (4)
  1. VERZENIO [Suspect]
     Active Substance: ABEMACICLIB
     Indication: Breast cancer
     Dosage: 100 MG, UNKNOWN
     Route: 048
  2. VERZENIO [Suspect]
     Active Substance: ABEMACICLIB
     Dosage: 150 MG, UNKNOWN
     Route: 048
     Dates: start: 20240816
  3. GOSERELIN [Concomitant]
     Active Substance: GOSERELIN
     Indication: Hormone therapy
     Dosage: UNK UNK, UNKNOWN
     Route: 065
     Dates: start: 202407
  4. ARIMIDEX [Concomitant]
     Active Substance: ANASTROZOLE
     Indication: Hormone therapy
     Dosage: 100 MG, BID
     Route: 048

REACTIONS (3)
  - Gastrooesophageal reflux disease [Unknown]
  - Vaginal haemorrhage [Not Recovered/Not Resolved]
  - Nausea [Unknown]

NARRATIVE: CASE EVENT DATE: 20240821
